FAERS Safety Report 6093010-2 (Version None)
Quarter: 2009Q1

REPORT INFORMATION
  Report Type: 
  Country: None (occurrence: None)
  Receive Date: 20090224
  Receipt Date: 20090223
  Transmission Date: 20090719
  Serious: Yes (Death)
  Sender: FDA-Public Use
  Company Number: AE-209-071

PATIENT
  Age: 65 Year
  Sex: Female

DRUGS (1)
  1. LIDODERM [Suspect]
     Indication: SCIATICA
     Dosage: UP TO 3 PATCHES A DAY

REACTIONS (1)
  - MYOCARDIAL INFARCTION [None]
